FAERS Safety Report 5363654-1 (Version None)
Quarter: 2007Q2

REPORT INFORMATION
  Report Type: 
  Country: None (occurrence: None)
  Receive Date: 20070618
  Receipt Date: 20070618
  Transmission Date: 20071010
  Serious: Yes (Hospitalization)
  Sender: FDA-Public Use
  Company Number: None

PATIENT
  Age: 64 Year
  Sex: Male
  Weight: 78.2 kg

DRUGS (1)
  1. CISATRACURIUM [Suspect]
     Dates: start: 20070117, end: 20070117

REACTIONS (1)
  - MYOPATHY [None]
